FAERS Safety Report 5609761-7 (Version None)
Quarter: 2008Q1

REPORT INFORMATION
  Report Type: 
  Country: None (occurrence: None)
  Receive Date: 20080131
  Receipt Date: 20071115
  Transmission Date: 20080703
  Serious: No
  Sender: FDA-Public Use
  Company Number: US-BAYER-200713783BCC

PATIENT
  Age: 58 Year
  Sex: Female
  Weight: 79 kg

DRUGS (3)
  1. ALEVE COLD AND SINUS [Suspect]
     Indication: SINUS HEADACHE
     Dosage: AS USED: 440 MG  UNIT DOSE: 220 MG
     Route: 048
  2. MOISTURIZER [Concomitant]
     Route: 061
  3. SYNTHROID [Concomitant]

REACTIONS (2)
  - BLISTER [None]
  - PRURITUS [None]
